FAERS Safety Report 18617650 (Version 3)
Quarter: 2021Q1

REPORT INFORMATION
  Report Type: Spontaneous
  Country: US (occurrence: US)
  Receive Date: 20201215
  Receipt Date: 20210316
  Transmission Date: 20210419
  Serious: No
  Sender: FDA-Public Use
  Company Number: US-SA-2020SA358923

PATIENT
  Age: 41 Year
  Sex: Female

DRUGS (2)
  1. DUPIXENT [Suspect]
     Active Substance: DUPILUMAB
     Dosage: UNK
     Route: 058
     Dates: start: 20201201
  2. DUPIXENT [Suspect]
     Active Substance: DUPILUMAB
     Dosage: 300 MG; FREQ: OTHER
     Route: 058
     Dates: start: 202101

REACTIONS (3)
  - Product dispensing error [Unknown]
  - Injection site reaction [Unknown]
  - Pyrexia [Unknown]

NARRATIVE: CASE EVENT DATE: 2020
